FAERS Safety Report 7831019-6 (Version None)
Quarter: 2011Q4

REPORT INFORMATION
  Report Type: 
  Country: None (occurrence: None)
  Receive Date: 20111021
  Receipt Date: 20111017
  Transmission Date: 20120403
  Serious: Yes (Other)
  Sender: FDA-Public Use
  Company Number: DE-PFIZER INC-2011238286

PATIENT
  Age: 65 Year
  Sex: Female

DRUGS (3)
  1. AMITRIPTYLINE [Concomitant]
  2. XALATAN [Suspect]
     Dosage: UNK
  3. BETABLOC [Concomitant]

REACTIONS (3)
  - PHOTOPSIA [None]
  - LACRIMATION INCREASED [None]
  - VISUAL IMPAIRMENT [None]
